FAERS Safety Report 20644395 (Version 1)
Quarter: 2022Q1

REPORT INFORMATION
  Report Type: Spontaneous
  Country: US (occurrence: US)
  Receive Date: 20220328
  Receipt Date: 20220328
  Transmission Date: 20220424
  Serious: Yes (Other)
  Sender: FDA-Public Use
  Company Number: US-SA-SAC20220317001617

PATIENT
  Sex: Male

DRUGS (2)
  1. AUBAGIO [Suspect]
     Active Substance: TERIFLUNOMIDE
     Indication: Multiple sclerosis
     Dosage: 1 DF, QD
     Route: 048
  2. FLUOXETINE [Suspect]
     Active Substance: FLUOXETINE HYDROCHLORIDE
     Dosage: UNK

REACTIONS (17)
  - Multiple sclerosis [Unknown]
  - Neuropathy peripheral [Unknown]
  - Depression [Unknown]
  - Hypersensitivity [Unknown]
  - Constipation [Unknown]
  - Contusion [Unknown]
  - Paraesthesia [Unknown]
  - Fall [Unknown]
  - Condition aggravated [Unknown]
  - Head injury [Unknown]
  - Memory impairment [Unknown]
  - Condition aggravated [Unknown]
  - Blood pressure increased [Unknown]
  - Muscular weakness [Unknown]
  - Exposure to SARS-CoV-2 [Unknown]
  - SARS-CoV-2 test positive [Unknown]
  - COVID-19 [Unknown]
